FAERS Safety Report 24370791 (Version 1)
Quarter: 2024Q3

REPORT INFORMATION
  Report Type: Spontaneous
  Country: CN (occurrence: CN)
  Receive Date: 20240927
  Receipt Date: 20240927
  Transmission Date: 20241017
  Serious: Yes (Hospitalization)
  Sender: NEXUS PHARMACEUTICALS
  Company Number: CN-Nexus Pharma-000315

PATIENT
  Age: 70 Year
  Sex: Female

DRUGS (1)
  1. ISOPROTERENOL HYDROCHLORIDE [Suspect]
     Active Substance: ISOPROTERENOL HYDROCHLORIDE
     Indication: Haemodynamic instability
     Dosage: 0.5 UG/MIN
     Route: 042

REACTIONS (2)
  - Cardiac index decreased [Unknown]
  - Heart rate increased [Recovered/Resolved]
